FAERS Safety Report 23437951 (Version 1)
Quarter: 2024Q1

REPORT INFORMATION
  Report Type: Spontaneous
  Country: GR (occurrence: GR)
  Receive Date: 20240124
  Receipt Date: 20240124
  Transmission Date: 20240410
  Serious: Yes (Other)
  Sender: FDA-Public Use
  Company Number: GR-SANOFI-01872516

PATIENT

DRUGS (9)
  1. HYDROXYCHLOROQUINE [Suspect]
     Active Substance: HYDROXYCHLOROQUINE
     Indication: Product used for unknown indication
     Dosage: UNK, BIW (UNK UNK, QOW) (PLAQUENIL SULFATE)
     Route: 065
     Dates: start: 20231206
  2. ARAVA [Suspect]
     Active Substance: LEFLUNOMIDE
     Indication: Arthritis
     Dosage: UNK, 1X1 4 DAYS
     Route: 065
     Dates: start: 20231206, end: 202312
  3. LIPTRUZET [Concomitant]
     Active Substance: ATORVASTATIN CALCIUM\EZETIMIBE
     Dosage: UNK
     Route: 065
  4. LASIX [Concomitant]
     Active Substance: FUROSEMIDE
     Dosage: UNK
     Route: 065
  5. XULTOPHY 100/3.6 [Concomitant]
     Active Substance: INSULIN DEGLUDEC\LIRAGLUTIDE
     Dosage: UNK
     Route: 065
  6. ALLOPURINOL [Concomitant]
     Active Substance: ALLOPURINOL
     Dosage: UNK
     Route: 065
  7. ASPIRIN [Concomitant]
     Active Substance: ASPIRIN
     Dosage: UNK
     Route: 065
  8. NEBIVOLOL HYDROCHLORIDE [Concomitant]
     Active Substance: NEBIVOLOL HYDROCHLORIDE
     Dosage: UNK
     Route: 065
  9. SEROPRAM [ESCITALOPRAM OXALATE] [Concomitant]
     Dosage: UNK
     Route: 065

REACTIONS (3)
  - Anaphylactic reaction [Unknown]
  - Blister [Not Recovered/Not Resolved]
  - Rash erythematous [Recovering/Resolving]

NARRATIVE: CASE EVENT DATE: 20231201
